FAERS Safety Report 8979619 (Version 7)
Quarter: 2013Q1

REPORT INFORMATION
  Report Type: Spontaneous
  Country: CZ (occurrence: CZ)
  Receive Date: 20121221
  Receipt Date: 20130321
  Transmission Date: 20140127
  Serious: Yes (Hospitalization)
  Sender: FDA-Public Use
  Company Number: CZ-CELGENEUS-217-21880-12111381

PATIENT
  Age: 78 Year
  Sex: Male

DRUGS (24)
  1. REVLIMID [Suspect]
     Indication: PLASMA CELL MYELOMA
     Dosage: 10 MILLIGRAM
     Route: 048
     Dates: start: 20120515, end: 20121022
  2. REVLIMID [Suspect]
     Dosage: 10 MILLIGRAM
     Route: 048
     Dates: start: 20121106, end: 20121119
  3. DEXAMETHASONE [Suspect]
     Indication: PLASMA CELL MYELOMA
     Dosage: 40 MILLIGRAM
     Route: 048
     Dates: start: 20120515
  4. DEXAMETHASONE [Suspect]
     Dosage: 40 MILLIGRAM
     Route: 048
     Dates: start: 20121030, end: 20121030
  5. DEXAMETHASONE [Suspect]
     Dosage: 40 MILLIGRAM
     Route: 048
     Dates: start: 20121106
  6. BONEFOS [Concomitant]
     Indication: PRODUCT USED FOR UNKNOWN INDICATION
     Route: 065
     Dates: start: 20100608
  7. CALTRATE [Concomitant]
     Indication: PRODUCT USED FOR UNKNOWN INDICATION
     Route: 065
     Dates: start: 20091118
  8. PRESTARIUM [Concomitant]
     Indication: PRODUCT USED FOR UNKNOWN INDICATION
     Route: 065
     Dates: start: 20091118
  9. HELICID [Concomitant]
     Indication: PRODUCT USED FOR UNKNOWN INDICATION
     Route: 065
     Dates: start: 20120515
  10. ANOPYRIN [Concomitant]
     Indication: PRODUCT USED FOR UNKNOWN INDICATION
     Route: 065
     Dates: start: 20120515, end: 20121106
  11. ANOPYRIN [Concomitant]
     Route: 065
     Dates: start: 20130305
  12. PHOSPHATE [Concomitant]
     Indication: PRODUCT USED FOR UNKNOWN INDICATION
     Route: 065
     Dates: start: 20121016, end: 20121016
  13. PHOSPHATE [Concomitant]
     Route: 065
     Dates: start: 20120918, end: 20120918
  14. PHOSPHATE [Concomitant]
     Route: 065
     Dates: start: 20121106, end: 20121106
  15. PHOSPHATE [Concomitant]
     Route: 065
     Dates: start: 20121211, end: 20121211
  16. PHOSPHATE [Concomitant]
     Route: 065
     Dates: start: 20130122, end: 20130122
  17. PHOSPHATE [Concomitant]
     Route: 065
     Dates: start: 20130212, end: 20130212
  18. PHOSPHATE [Concomitant]
     Route: 065
     Dates: start: 20130219, end: 20130219
  19. PHOSPHATE [Concomitant]
     Route: 065
     Dates: start: 20130305, end: 20130305
  20. GABAPENTIN [Concomitant]
     Indication: PRODUCT USED FOR UNKNOWN INDICATION
     Route: 065
     Dates: start: 20120515, end: 20121016
  21. SUMETROLIM [Concomitant]
     Indication: PRODUCT USED FOR UNKNOWN INDICATION
     Route: 065
     Dates: start: 20120515, end: 20120820
  22. SUMETROLIM [Concomitant]
     Route: 065
     Dates: start: 20120828
  23. HERPESIN [Concomitant]
     Indication: PRODUCT USED FOR UNKNOWN INDICATION
     Route: 065
     Dates: start: 20121002, end: 20130122
  24. ZINNAT [Concomitant]
     Indication: PRODUCT USED FOR UNKNOWN INDICATION
     Route: 065
     Dates: start: 20130122, end: 20130131

REACTIONS (2)
  - Haemangioma [Recovered/Resolved]
  - Bronchitis [Recovered/Resolved]
